FAERS Safety Report 14660078 (Version 3)
Quarter: 2018Q2

REPORT INFORMATION
  Report Type: Report from Study
  Country: NL (occurrence: NL)
  Receive Date: 20180320
  Receipt Date: 20180410
  Transmission Date: 20180711
  Serious: Yes (Hospitalization)
  Sender: FDA-Public Use
  Company Number: NL-PFIZER INC-2018114045

PATIENT
  Age: 7 Year
  Sex: Male

DRUGS (22)
  1. AMOXICILLINE /00249603/ [Concomitant]
     Active Substance: AMOXICILLIN SODIUM
     Indication: BACTERIAL INFECTION
     Dosage: 2430 MG, DAILY
     Route: 042
     Dates: start: 20180228, end: 20180304
  2. RASBURICASE [Concomitant]
     Active Substance: RASBURICASE
     Indication: HYPERURICAEMIA
     Dosage: 5 MG, DAILY
     Route: 042
     Dates: start: 20180228, end: 20180305
  3. ALTEPLASE. [Concomitant]
     Active Substance: ALTEPLASE
     Indication: THROMBOLYSIS
     Dosage: 2 MG, DAILY
     Route: 042
     Dates: start: 20180307, end: 20180308
  4. PARACETAMOL [Concomitant]
     Active Substance: ACETAMINOPHEN
     Indication: ANALGESIC THERAPY
     Dosage: 1500 MG, DAILY
     Route: 042
     Dates: start: 20180228, end: 20180306
  5. TRAMADOL. [Concomitant]
     Active Substance: TRAMADOL
     Indication: ANALGESIC THERAPY
     Dosage: 100 MG, DAILY
     Route: 042
     Dates: start: 20180228, end: 20180306
  6. CLEMASTINE [Concomitant]
     Active Substance: CLEMASTINE
     Indication: ANAPHYLAXIS PROPHYLAXIS
     Dosage: 0.6 MG, DAILY
     Route: 042
     Dates: start: 20180226, end: 20180302
  7. PARACETAMOL [Concomitant]
     Active Substance: ACETAMINOPHEN
     Indication: ANALGESIC THERAPY
     Dosage: 1500 MG, DAILY
     Route: 048
     Dates: start: 20180306, end: 20180307
  8. ONDANSETRON [Concomitant]
     Active Substance: ONDANSETRON
     Indication: PROPHYLAXIS
     Dosage: 12 MG, DAILY
     Route: 042
     Dates: start: 20180301, end: 20180303
  9. KALIUMCHLORIDE [Concomitant]
     Indication: HYPOKALAEMIA
     Dosage: 13 MMOL, DAILY
     Route: 042
     Dates: start: 20180302, end: 20180303
  10. GRANISETRON [Concomitant]
     Active Substance: GRANISETRON
     Indication: NAUSEA
     Dosage: 1 MG, DAILY
     Route: 042
     Dates: start: 20180303, end: 20180307
  11. AZITROMYCINE [Concomitant]
     Indication: BACTERIAL INFECTION
     Dosage: 250 MG, DAILY
     Route: 048
     Dates: start: 20180304, end: 20180306
  12. CEFTAZIDIM [Concomitant]
     Active Substance: CEFTAZIDIME
     Indication: BACTERIAL INFECTION
     Dosage: 3750 MG, DAILY
     Route: 042
     Dates: start: 20180304, end: 20180309
  13. INOTUZUMAB OZOGAMICIN [Suspect]
     Active Substance: INOTUZUMAB OZOGAMICIN
     Indication: ACUTE LYMPHOCYTIC LEUKAEMIA
     Dosage: 0.77 MG, UNK
     Dates: start: 20180302, end: 20180302
  14. METHYLPREDNISOLONE. [Suspect]
     Active Substance: METHYLPREDNISOLONE
     Dosage: 25 MG, UNK
     Dates: start: 20180302, end: 20180302
  15. METHOTREXATE. [Concomitant]
     Active Substance: METHOTREXATE
     Dosage: 12 MG, UNK
     Dates: start: 20180301, end: 20180301
  16. PARACETAMOL [Concomitant]
     Active Substance: ACETAMINOPHEN
     Dosage: 1500 MG, DAILY
     Route: 042
     Dates: start: 20180307, end: 20180309
  17. XYLOMETAZOLINE [Concomitant]
     Active Substance: XYLOMETAZOLINE
     Indication: SINUSITIS
     Dosage: 4 GTT, DAILY
     Route: 045
     Dates: start: 20180226, end: 20180305
  18. FUROSEMIDE. [Concomitant]
     Active Substance: FUROSEMIDE
     Indication: DIURETIC THERAPY
     Dosage: 10 MG, DAILY
     Route: 042
     Dates: start: 20180302, end: 20180304
  19. TRAMADOL. [Concomitant]
     Active Substance: TRAMADOL
     Dosage: 25 MG, DAILY
     Route: 042
     Dates: start: 20180306, end: 20180308
  20. CIPROFLOXACIN. [Concomitant]
     Active Substance: CIPROFLOXACIN
     Indication: BACTERIAL INFECTION
     Dosage: 750 MG, DAILY
     Route: 048
     Dates: start: 20180303, end: 20180304
  21. ITRACONAZOLE. [Concomitant]
     Active Substance: ITRACONAZOLE
     Indication: FUNGAL INFECTION
     Dosage: 130 MG, DAILY
     Route: 048
     Dates: start: 20180303, end: 20180306
  22. OSELTAMIVIR [Concomitant]
     Active Substance: OSELTAMIVIR
     Indication: INFLUENZA
     Dosage: 120 MG, DAILY
     Route: 048
     Dates: start: 20180303, end: 20180308

REACTIONS (1)
  - Graft versus host disease in gastrointestinal tract [Recovered/Resolved]

NARRATIVE: CASE EVENT DATE: 20180308
